FAERS Safety Report 6209349-3 (Version None)
Quarter: 2009Q2

REPORT INFORMATION
  Report Type: 
  Country: None (occurrence: None)
  Receive Date: 20090529
  Receipt Date: 20090519
  Transmission Date: 20091009
  Serious: Yes (Hospitalization)
  Sender: FDA-Public Use
  Company Number: DE-B.I. PHARMACEUTICALS,INC./RIDGEFIELD-2009-DE-03857DE

PATIENT
  Sex: Male

DRUGS (2)
  1. VIRAMUNE [Suspect]
     Dosage: 20-30 TABLETS ONCE
     Dates: start: 20090201
  2. ANTIRETROVIRALS DRUGS [Concomitant]

REACTIONS (2)
  - ALANINE AMINOTRANSFERASE INCREASED [None]
  - OVERDOSE [None]
